FAERS Safety Report 5535173-0 (Version None)
Quarter: 2007Q4

REPORT INFORMATION
  Report Type: 
  Country: None (occurrence: None)
  Receive Date: 20071206
  Receipt Date: 20071127
  Transmission Date: 20080405
  Serious: Yes (Life-Threatening, Other)
  Sender: FDA-Public Use
  Company Number: GB-WYE-G00549307

PATIENT
  Sex: Male

DRUGS (2)
  1. EFFEXOR XR [Suspect]
     Indication: DEPRESSION
     Route: 048
     Dates: start: 20071001
  2. EFFEXOR XR [Suspect]
     Dosage: 225MG FREQUENCY UNKNOWN
     Route: 048
     Dates: start: 20071001

REACTIONS (3)
  - SELF-MEDICATION [None]
  - SUICIDAL IDEATION [None]
  - SUICIDE ATTEMPT [None]
